FAERS Safety Report 22802486 (Version 5)
Quarter: 2023Q4

REPORT INFORMATION
  Report Type: Report from Study
  Country: US (occurrence: US)
  Receive Date: 20230809
  Receipt Date: 20231212
  Transmission Date: 20240109
  Serious: No
  Sender: FDA-Public Use
  Company Number: US-002147023-NVSC2023US173471

PATIENT
  Sex: Female

DRUGS (1)
  1. KESIMPTA [Suspect]
     Active Substance: OFATUMUMAB
     Indication: Product used for unknown indication
     Dosage: 20 MG, QMO, (1ST LOADING DOSE 04 AUG)
     Route: 058

REACTIONS (6)
  - Facial pain [Recovered/Resolved]
  - Neck pain [Unknown]
  - Influenza like illness [Unknown]
  - Tremor [Unknown]
  - Discomfort [Unknown]
  - Fatigue [Unknown]
